FAERS Safety Report 7633228-8 (Version None)
Quarter: 2011Q3

REPORT INFORMATION
  Report Type: 
  Country: None (occurrence: None)
  Receive Date: 20110725
  Receipt Date: 20110721
  Transmission Date: 20111222
  Serious: Yes (Life-Threatening, Hospitalization, Disabling, Other)
  Sender: FDA-Public Use
  Company Number: RU-ASTRAZENECA-2011SE41032

PATIENT
  Age: 21906 Day
  Sex: Male

DRUGS (6)
  1. PRESTARIUM [Concomitant]
     Indication: HYPERTENSION
     Route: 048
  2. GLUCOPHAGE [Concomitant]
     Indication: DIABETES MELLITUS
     Route: 048
  3. LEVOTHYROXINE SODIUM [Concomitant]
     Indication: THYROXINE THERAPY
     Route: 048
  4. TROMBOASS [Concomitant]
     Indication: CARDIAC VALVE SCLEROSIS
     Route: 048
  5. EGILOK [Concomitant]
     Indication: HYPERTENSION
     Route: 048
  6. VANDETANIB [Suspect]
     Indication: THYROID CANCER
     Route: 048
     Dates: start: 20110629, end: 20110711

REACTIONS (1)
  - DIABETIC HYPERGLYCAEMIC COMA [None]
